FAERS Safety Report 5840605-4 (Version None)
Quarter: 2008Q3

REPORT INFORMATION
  Report Type: 
  Country: None (occurrence: None)
  Receive Date: 20080811
  Receipt Date: 20080115
  Transmission Date: 20090109
  Serious: No
  Sender: FDA-Public Use
  Company Number: GB-BAYER-200711295BNE

PATIENT
  Sex: Female

DRUGS (1)
  1. ULTRAVIST 370 [Suspect]
     Indication: VASCULAR IMAGING
     Route: 042
     Dates: start: 20071130, end: 20071130

REACTIONS (4)
  - ERYTHEMA [None]
  - MALAISE [None]
  - PRURITUS [None]
  - URTICARIA [None]
